FAERS Safety Report 11623098 (Version 1)
Quarter: 2015Q4

REPORT INFORMATION
  Report Type: Spontaneous
  Country: US (occurrence: None)
  Receive Date: 20151009
  Receipt Date: 20151009
  Transmission Date: 20160304
  Serious: No
  Sender: FDA-Public Use
  Company Number: None

PATIENT
  Age: 24 Year
  Sex: Female
  Weight: 61.24 kg

DRUGS (2)
  1. ORTHO TRI CYCLEN LO [Concomitant]
     Active Substance: ETHINYL ESTRADIOL\NORGESTIMATE
  2. COMPLETE CARE TARTAR CONTROL PLUS WHITENING BAKING SODA AND PEROXIDE [Suspect]
     Active Substance: SODIUM FLUORIDE
     Dates: start: 20151004, end: 20151007

REACTIONS (3)
  - Tongue exfoliation [None]
  - Glossodynia [None]
  - Oral mucosal exfoliation [None]

NARRATIVE: CASE EVENT DATE: 20151007
